FAERS Safety Report 6358973-6 (Version None)
Quarter: 2009Q3

REPORT INFORMATION
  Report Type: 
  Country: None (occurrence: None)
  Receive Date: 20090914
  Receipt Date: 20090831
  Transmission Date: 20100115
  Serious: Yes (Other)
  Sender: FDA-Public Use
  Company Number: URSO-2009-104

PATIENT
  Sex: Female

DRUGS (4)
  1. URSO 100MG TABLETS (URSODEOXYCHOLIC ACID) [Suspect]
     Indication: CHOLESTASIS
     Dosage: 300MG ORAL
     Route: 048
     Dates: start: 20090710, end: 20090731
  2. LOXONIN (LOXOPROFEN SODIUM) [Concomitant]
  3. CLARITHROMYCIN [Concomitant]
  4. SIGMART (NICORANDIL) [Concomitant]

REACTIONS (1)
  - RENAL DISORDER [None]
